FAERS Safety Report 14900217 (Version 1)
Quarter: 2018Q2

REPORT INFORMATION
  Report Type: Report from Study
  Country: BR (occurrence: BR)
  Receive Date: 20180516
  Receipt Date: 20180516
  Transmission Date: 20180711
  Serious: Yes (Other)
  Sender: FDA-Public Use
  Company Number: PHHY2018BR007880

PATIENT
  Sex: Female
  Weight: 78 kg

DRUGS (2)
  1. ACLASTA [Suspect]
     Active Substance: ZOLEDRONIC ACID
     Indication: OSTEOPOROSIS
     Dosage: 1 DF (5 MG BY 100 ML), Q12MO
     Route: 042
     Dates: start: 20141220, end: 20141220
  2. CALCIUM [Suspect]
     Active Substance: CALCIUM
     Indication: OSTEOPOROSIS
     Route: 065

REACTIONS (2)
  - Spinal fracture [Recovered/Resolved]
  - Gastric disorder [Unknown]
